FAERS Safety Report 18122350 (Version 1)
Quarter: 2020Q3

REPORT INFORMATION
  Report Type: Spontaneous
  Country: US (occurrence: US)
  Receive Date: 20200807
  Receipt Date: 20200807
  Transmission Date: 20201103
  Serious: No
  Sender: FDA-Public Use
  Company Number: US-GLENMARK PHARMACEUTICALS-2020GMK048196

PATIENT
  Sex: Female

DRUGS (2)
  1. CLOTRIMAZOLE AND BETAMETHASONE DIPROPIONATE CREAM USP, 1%/0.05% (BASE) [Suspect]
     Active Substance: BETAMETHASONE DIPROPIONATE\CLOTRIMAZOLE
     Indication: BACK PAIN
     Dosage: UNK UNK, BID
     Route: 061
     Dates: start: 202006
  2. NEOSPORIN [Suspect]
     Active Substance: BACITRACIN ZINC\NEOMYCIN SULFATE\POLYMYXIN B SULFATE
     Indication: BACK PAIN
     Dosage: UNK;THREE TO FOUR TIMES
     Route: 061
     Dates: start: 202006

REACTIONS (4)
  - Product use in unapproved indication [Unknown]
  - Skin burning sensation [Unknown]
  - Swelling [Unknown]
  - Paraesthesia [Unknown]

NARRATIVE: CASE EVENT DATE: 202006
